FAERS Safety Report 20657562 (Version 2)
Quarter: 2022Q4

REPORT INFORMATION
  Report Type: Spontaneous
  Country: US (occurrence: US)
  Receive Date: 20220331
  Receipt Date: 20221024
  Transmission Date: 20230112
  Serious: No
  Sender: FDA-Public Use
  Company Number: US-SA-2022SA110370

PATIENT
  Age: 24 Year
  Sex: Male
  Weight: 83.9 kg

DRUGS (18)
  1. CEREZYME [Suspect]
     Active Substance: IMIGLUCERASE
     Indication: Gaucher^s disease
     Dosage: 1600 IU, QOW
     Route: 042
     Dates: start: 20100104
  2. LIDOCAINE [Concomitant]
     Active Substance: LIDOCAINE
     Dosage: UNK
  3. STERILE WATER [Concomitant]
     Active Substance: WATER
     Dosage: UNK
  4. EPINEPHRINE [Concomitant]
     Active Substance: EPINEPHRINE
     Dosage: UNK
  5. NAPROXEN [Concomitant]
     Active Substance: NAPROXEN
     Dosage: UNK
  6. TRIAMCINOLONE ACETONIDE [Concomitant]
     Active Substance: TRIAMCINOLONE ACETONIDE
     Dosage: UNK
  7. SYMBICORT [Concomitant]
     Active Substance: BUDESONIDE\FORMOTEROL FUMARATE DIHYDRATE
     Dosage: UNK
  8. CETIRIZINE [Concomitant]
     Active Substance: CETIRIZINE HYDROCHLORIDE
     Dosage: UNK
  9. BOMINE [GLUCOSAMINE SULFATE] [Concomitant]
     Dosage: UNK
  10. TYLENOL [Concomitant]
     Active Substance: ACETAMINOPHEN
     Dosage: UNK
  11. SODIUM CHLORIDE [Concomitant]
     Active Substance: SODIUM CHLORIDE
     Dosage: UNK
  12. ST. JOHN^S WORT [Concomitant]
     Active Substance: ST. JOHN^S WORT
     Dosage: UNK
  13. FISH OIL\OMEGA-3 FATTY ACIDS [Concomitant]
     Active Substance: FISH OIL\OMEGA-3 FATTY ACIDS
     Dosage: UNK
  14. ZYRTEC [Concomitant]
     Active Substance: CETIRIZINE HYDROCHLORIDE
  15. IBUPROFEN IB [Concomitant]
     Active Substance: IBUPROFEN
  16. MOTRIN IB [Concomitant]
     Active Substance: IBUPROFEN
  17. NASACORT [Concomitant]
     Active Substance: TRIAMCINOLONE ACETONIDE
  18. PROTEIN [Concomitant]
     Active Substance: PROTEIN

REACTIONS (4)
  - Tendonitis [Unknown]
  - Contusion [Unknown]
  - Pain [Unknown]
  - Fatigue [Unknown]
